FAERS Safety Report 8457409-9 (Version None)
Quarter: 2012Q2

REPORT INFORMATION
  Report Type: 
  Country: None (occurrence: None)
  Receive Date: 20120621
  Receipt Date: 20120618
  Transmission Date: 20120825
  Serious: Yes (Other)
  Sender: FDA-Public Use
  Company Number: PHHY2012US052403

PATIENT
  Age: 87 Year
  Sex: Female

DRUGS (1)
  1. BUFFERIN [Suspect]
     Route: 048

REACTIONS (1)
  - OEDEMA MOUTH [None]
